FAERS Safety Report 25125072 (Version 1)
Quarter: 2025Q1

REPORT INFORMATION
  Report Type: Spontaneous
  Country: DE (occurrence: DE)
  Receive Date: 20250326
  Receipt Date: 20250326
  Transmission Date: 20250409
  Serious: Yes (Hospitalization, Other)
  Sender: DR REDDYS
  Company Number: None

PATIENT
  Age: 61 Year
  Sex: Female
  Weight: 57.5 kg

DRUGS (1)
  1. FINGOLIMOD [Suspect]
     Active Substance: FINGOLIMOD
     Indication: Relapsing-remitting multiple sclerosis
     Dosage: 1-0-0/0.5 MG HARD CAPSULES
     Route: 048
     Dates: start: 20240915, end: 20250305

REACTIONS (8)
  - Lymphocyte count increased [Unknown]
  - Diplopia [Unknown]
  - Gait disturbance [Unknown]
  - Multiple sclerosis relapse [Unknown]
  - Rebound effect [Unknown]
  - Product substitution issue [Unknown]
  - Product quality issue [Unknown]
  - Product compounding quality issue [Unknown]

NARRATIVE: CASE EVENT DATE: 20241023
